FAERS Safety Report 8113158-8 (Version None)
Quarter: 2011Q4

REPORT INFORMATION
  Report Type: 
  Country: None (occurrence: None)
  Receive Date: 20111227
  Receipt Date: 20111018
  Transmission Date: 20120403
  Serious: Yes (Other)
  Sender: FDA-Public Use
  Company Number: PHEH2011US07298

PATIENT
  Age: 46 Year
  Sex: Female
  Weight: 59 kg

DRUGS (4)
  1. GILENYA [Suspect]
     Dosage: 0.5 MG, QD, ORAL
     Route: 048
  2. VITAMIN B-COMPLEX (NO INGREDIENTS/SUBSTANCES) [Concomitant]
  3. MULTIVITAMIN [Concomitant]
  4. NUVIGIL [Concomitant]

REACTIONS (2)
  - HEART RATE DECREASED [None]
  - FATIGUE [None]
